FAERS Safety Report 9391327 (Version 2)
Quarter: 2013Q3

REPORT INFORMATION
  Report Type: Spontaneous
  Country: DE (occurrence: DE)
  Receive Date: 20130709
  Receipt Date: 20130725
  Transmission Date: 20140515
  Serious: Yes (Other)
  Sender: FDA-Public Use
  Company Number: DE-JNJFOC-20130701119

PATIENT
  Age: 75 Year
  Sex: Male
  Weight: 113.83 kg

DRUGS (6)
  1. XARELTO [Suspect]
     Indication: CEREBROVASCULAR ACCIDENT PROPHYLAXIS
     Route: 048
     Dates: start: 20130607, end: 20130610
  2. XARELTO [Suspect]
     Indication: ATRIAL FIBRILLATION
     Route: 048
     Dates: start: 20130607, end: 20130610
  3. METOPROLOL [Concomitant]
     Indication: CARDIAC FAILURE
     Route: 065
     Dates: start: 2010
  4. METFORMIN [Concomitant]
     Indication: DIABETES MELLITUS
     Route: 065
     Dates: start: 2010
  5. TORASEMID [Concomitant]
     Indication: CARDIAC FAILURE
     Route: 065
     Dates: start: 2010
  6. FUROSEMID [Concomitant]
     Indication: CARDIAC FAILURE
     Route: 065
     Dates: start: 2010

REACTIONS (3)
  - Dyspnoea [Recovered/Resolved]
  - Increased bronchial secretion [Recovered/Resolved]
  - Photopsia [Recovered/Resolved]
